FAERS Safety Report 14179432 (Version 1)
Quarter: 2017Q4

REPORT INFORMATION
  Report Type: Report from Study
  Country: BE (occurrence: BE)
  Receive Date: 20171110
  Receipt Date: 20171110
  Transmission Date: 20180321
  Serious: Yes (Hospitalization)
  Sender: FDA-Public Use
  Company Number: BE-SAOL THERAPEUTICS-2017SAO01757

PATIENT
  Sex: Male

DRUGS (2)
  1. BACLOFEN. [Suspect]
     Active Substance: BACLOFEN
     Dosage: 119.9 ?G, \DAY
     Route: 037
     Dates: start: 20170413, end: 20170420
  2. BACLOFEN. [Suspect]
     Active Substance: BACLOFEN
     Dosage: 100.1 ?G, \DAY
     Route: 037
     Dates: start: 20170420

REACTIONS (2)
  - Implant site swelling [Recovered/Resolved]
  - Headache [Recovered/Resolved]

NARRATIVE: CASE EVENT DATE: 20170420
